FAERS Safety Report 10084832 (Version 1)
Quarter: 2014Q2

REPORT INFORMATION
  Report Type: Spontaneous
  Country: GB (occurrence: GB)
  Receive Date: 20140417
  Receipt Date: 20140417
  Transmission Date: 20141212
  Serious: Yes (Other)
  Sender: FDA-Public Use
  Company Number: GB-ELI_LILLY_AND_COMPANY-GB201404003174

PATIENT
  Age: 67 Year
  Sex: Male

DRUGS (2)
  1. EFIENT [Suspect]
     Indication: STENT PLACEMENT
     Dosage: 60 MG, SINGLE
     Route: 048
     Dates: start: 20140212, end: 20140212
  2. EFIENT [Suspect]
     Dosage: 10 MG, QD
     Route: 048
     Dates: start: 20140212

REACTIONS (1)
  - Gout [Not Recovered/Not Resolved]
